FAERS Safety Report 10337218 (Version 1)
Quarter: 2014Q3

REPORT INFORMATION
  Report Type: Spontaneous
  Country: US (occurrence: US)
  Receive Date: 20140723
  Receipt Date: 20140723
  Transmission Date: 20150326
  Serious: Yes (Other)
  Sender: FDA-Public Use
  Company Number: US-PFIZER INC-2014202014

PATIENT
  Age: 37 Year
  Sex: Female
  Weight: 86.17 kg

DRUGS (5)
  1. LYRICA [Suspect]
     Active Substance: PREGABALIN
     Indication: FIBROMYALGIA
     Dosage: 50MG IN AM, 50MG IN AFTERNOON,100MG AT HS)
     Route: 048
  2. LEVOTHYROXINE [Concomitant]
     Active Substance: LEVOTHYROXINE
     Indication: THYROID DISORDER
     Dosage: UNK
  3. RANTAC [Concomitant]
     Indication: DYSPEPSIA
  4. FLEXERIL [Concomitant]
     Active Substance: CYCLOBENZAPRINE HYDROCHLORIDE
     Dosage: 30 MG, UNK
  5. RANTAC [Concomitant]
     Indication: DYSPEPSIA
     Dosage: UNK

REACTIONS (1)
  - Uterine disorder [Unknown]

NARRATIVE: CASE EVENT DATE: 200811
